FAERS Safety Report 6268232-8 (Version None)
Quarter: 2009Q3

REPORT INFORMATION
  Report Type: 
  Country: None (occurrence: None)
  Receive Date: 20090714
  Receipt Date: 20090714
  Transmission Date: 20100115
  Serious: Yes (Death)
  Sender: FDA-Public Use
  Company Number: None

PATIENT
  Age: 62 Year
  Sex: Male
  Weight: 72.5755 kg

DRUGS (1)
  1. CHANTIX [Suspect]
     Indication: SMOKING CESSATION THERAPY
     Dosage: 1 MG TAB 1 IN AM, 1 IN PM PO
     Route: 048
     Dates: start: 20081110, end: 20090711

REACTIONS (7)
  - ABNORMAL BEHAVIOUR [None]
  - COMPLETED SUICIDE [None]
  - GUN SHOT WOUND [None]
  - INJURY [None]
  - MOOD ALTERED [None]
  - PERSONALITY CHANGE [None]
  - SKIN LACERATION [None]
